FAERS Safety Report 16538825 (Version 1)
Quarter: 2019Q3

REPORT INFORMATION
  Report Type: Report from Study
  Country: MX (occurrence: MX)
  Receive Date: 20190708
  Receipt Date: 20190708
  Transmission Date: 20191004
  Serious: Yes (Other)
  Sender: FDA-Public Use
  Company Number: MX-UCBSA-2017032128

PATIENT
  Age: 42 Year
  Sex: Female
  Weight: 56 kg

DRUGS (4)
  1. LEVOTHYROXINE W/LIOTHYRONINE [Concomitant]
     Indication: ANKYLOSING SPONDYLITIS
     Dosage: 100 MG/ 24 HRS
     Route: 048
  2. CERTOLIZUMAB PEGOL [Suspect]
     Active Substance: CERTOLIZUMAB PEGOL
     Indication: ANKYLOSING SPONDYLITIS
     Dosage: 400 MG, MONTHLY (QM)
     Route: 058
     Dates: start: 20160501, end: 2017
  3. METHOTREXATE. [Concomitant]
     Active Substance: METHOTREXATE
     Indication: ANKYLOSING SPONDYLITIS
     Dosage: 6 TABLETS EACH WEEK
     Dates: start: 2016
  4. CERTOLIZUMAB PEGOL [Suspect]
     Active Substance: CERTOLIZUMAB PEGOL
     Dosage: UNKNOWN DOSE
     Route: 058
     Dates: start: 201707

REACTIONS (8)
  - Urinary tract infection [Unknown]
  - Pyrexia [Recovered/Resolved]
  - Cough [Not Recovered/Not Resolved]
  - Influenza [Not Recovered/Not Resolved]
  - Anxiety [Not Recovered/Not Resolved]
  - Insomnia [Recovered/Resolved]
  - Infection [Unknown]
  - Drug ineffective [Unknown]

NARRATIVE: CASE EVENT DATE: 2017
